FAERS Safety Report 24224017 (Version 15)
Quarter: 2025Q2

REPORT INFORMATION
  Report Type: Spontaneous
  Country: GB (occurrence: GB)
  Receive Date: 20240819
  Receipt Date: 20250620
  Transmission Date: 20250717
  Serious: Yes (Death, Other)
  Sender: BAXTER
  Company Number: GB-ROCHE-2729221

PATIENT
  Age: 72 Year
  Sex: Female
  Weight: 62 kg

DRUGS (324)
  1. DOXORUBICIN [Suspect]
     Active Substance: DOXORUBICIN
     Indication: Diffuse large B-cell lymphoma
     Route: 065
  2. DOXORUBICIN [Suspect]
     Active Substance: DOXORUBICIN
     Route: 065
     Dates: start: 20201124
  3. DOXORUBICIN [Suspect]
     Active Substance: DOXORUBICIN
     Route: 042
  4. DOXORUBICIN [Suspect]
     Active Substance: DOXORUBICIN
     Route: 042
  5. DOXORUBICIN [Suspect]
     Active Substance: DOXORUBICIN
     Route: 042
  6. DOXORUBICIN [Suspect]
     Active Substance: DOXORUBICIN
     Route: 042
  7. DOXORUBICIN [Suspect]
     Active Substance: DOXORUBICIN
     Route: 042
  8. DOXORUBICIN [Suspect]
     Active Substance: DOXORUBICIN
     Route: 042
     Dates: start: 20201124
  9. DOXORUBICIN [Suspect]
     Active Substance: DOXORUBICIN
     Route: 042
     Dates: start: 20201124
  10. DOXORUBICIN [Suspect]
     Active Substance: DOXORUBICIN
     Route: 042
     Dates: start: 20201124
  11. DOXORUBICIN [Suspect]
     Active Substance: DOXORUBICIN
     Route: 065
  12. DOXORUBICIN HYDROCHLORIDE [Suspect]
     Active Substance: DOXORUBICIN HYDROCHLORIDE
     Indication: Diffuse large B-cell lymphoma
     Route: 065
     Dates: start: 20201124
  13. BENDAMUSTINE [Suspect]
     Active Substance: BENDAMUSTINE
     Indication: Prophylaxis
     Route: 065
  14. BENDAMUSTINE [Suspect]
     Active Substance: BENDAMUSTINE
     Route: 065
  15. BENDAMUSTINE [Suspect]
     Active Substance: BENDAMUSTINE
     Route: 065
  16. BENDAMUSTINE [Suspect]
     Active Substance: BENDAMUSTINE
     Route: 065
  17. BENDAMUSTINE [Suspect]
     Active Substance: BENDAMUSTINE
     Route: 065
  18. BENDAMUSTINE [Suspect]
     Active Substance: BENDAMUSTINE
     Route: 065
  19. BENDAMUSTINE [Suspect]
     Active Substance: BENDAMUSTINE
     Route: 065
  20. BENDAMUSTINE [Suspect]
     Active Substance: BENDAMUSTINE
     Route: 065
  21. BENDAMUSTINE [Suspect]
     Active Substance: BENDAMUSTINE
     Route: 065
  22. CYCLOPHOSPHAMIDE [Suspect]
     Active Substance: CYCLOPHOSPHAMIDE
     Indication: Diffuse large B-cell lymphoma
     Route: 042
  23. CYCLOPHOSPHAMIDE [Suspect]
     Active Substance: CYCLOPHOSPHAMIDE
     Route: 065
     Dates: start: 20201124
  24. CYCLOPHOSPHAMIDE [Suspect]
     Active Substance: CYCLOPHOSPHAMIDE
     Route: 042
  25. CYCLOPHOSPHAMIDE [Suspect]
     Active Substance: CYCLOPHOSPHAMIDE
     Route: 042
  26. CYCLOPHOSPHAMIDE [Suspect]
     Active Substance: CYCLOPHOSPHAMIDE
     Route: 042
  27. CYCLOPHOSPHAMIDE [Suspect]
     Active Substance: CYCLOPHOSPHAMIDE
     Route: 042
  28. CYCLOPHOSPHAMIDE [Suspect]
     Active Substance: CYCLOPHOSPHAMIDE
     Route: 042
  29. CYCLOPHOSPHAMIDE [Suspect]
     Active Substance: CYCLOPHOSPHAMIDE
     Route: 042
     Dates: start: 20201124
  30. CYCLOPHOSPHAMIDE [Suspect]
     Active Substance: CYCLOPHOSPHAMIDE
     Route: 042
     Dates: start: 20201124
  31. PREDNISOLONE [Suspect]
     Active Substance: PREDNISOLONE
     Indication: Diffuse large B-cell lymphoma
     Route: 048
     Dates: start: 20201118, end: 20201122
  32. PREDNISOLONE [Suspect]
     Active Substance: PREDNISOLONE
     Indication: Product used for unknown indication
     Route: 048
     Dates: start: 20201124
  33. PREDNISOLONE [Suspect]
     Active Substance: PREDNISOLONE
     Route: 065
     Dates: start: 20201124
  34. PREDNISOLONE [Suspect]
     Active Substance: PREDNISOLONE
     Route: 048
  35. PREDNISOLONE [Suspect]
     Active Substance: PREDNISOLONE
     Route: 065
  36. PREDNISOLONE [Suspect]
     Active Substance: PREDNISOLONE
     Route: 048
     Dates: start: 20201118, end: 20201122
  37. PREDNISOLONE [Suspect]
     Active Substance: PREDNISOLONE
     Route: 048
     Dates: start: 20201118, end: 20201122
  38. PREDNISOLONE [Suspect]
     Active Substance: PREDNISOLONE
     Route: 048
     Dates: start: 20201124
  39. PREDNISOLONE [Suspect]
     Active Substance: PREDNISOLONE
     Route: 048
     Dates: start: 20201124
  40. PREDNISOLONE [Suspect]
     Active Substance: PREDNISOLONE
     Route: 048
     Dates: start: 20201124
  41. PREDNISOLONE [Suspect]
     Active Substance: PREDNISOLONE
     Route: 065
     Dates: start: 20201124
  42. PREDNISOLONE [Suspect]
     Active Substance: PREDNISOLONE
     Route: 065
  43. PREDNISOLONE [Suspect]
     Active Substance: PREDNISOLONE
     Route: 065
  44. PREDNISOLONE [Suspect]
     Active Substance: PREDNISOLONE
     Route: 065
  45. PREDNISOLONE [Suspect]
     Active Substance: PREDNISOLONE
     Route: 065
  46. PREDNISOLONE [Suspect]
     Active Substance: PREDNISOLONE
     Route: 065
  47. PREDNISOLONE [Suspect]
     Active Substance: PREDNISOLONE
     Route: 048
     Dates: start: 20201124
  48. PREDNISOLONE [Suspect]
     Active Substance: PREDNISOLONE
     Route: 065
     Dates: start: 20201118, end: 20201122
  49. PREDNISOLONE [Suspect]
     Active Substance: PREDNISOLONE
     Route: 048
     Dates: start: 20201124
  50. PREDNISOLONE [Suspect]
     Active Substance: PREDNISOLONE
     Route: 065
     Dates: start: 20201118, end: 20201122
  51. PREDNISOLONE [Suspect]
     Active Substance: PREDNISOLONE
     Route: 065
  52. PREDNISOLONE [Suspect]
     Active Substance: PREDNISOLONE
     Route: 065
  53. PREDNISOLONE [Suspect]
     Active Substance: PREDNISOLONE
     Route: 065
     Dates: start: 20201118, end: 20201122
  54. PREDNISOLONE [Suspect]
     Active Substance: PREDNISOLONE
     Route: 048
     Dates: start: 20201124
  55. PREDNISOLONE [Suspect]
     Active Substance: PREDNISOLONE
     Route: 065
     Dates: start: 20201118, end: 20201122
  56. PREDNISOLONE [Suspect]
     Active Substance: PREDNISOLONE
     Route: 048
     Dates: start: 20201122
  57. PREDNISOLONE [Suspect]
     Active Substance: PREDNISOLONE
     Route: 048
     Dates: start: 20201124
  58. PREDNISOLONE [Suspect]
     Active Substance: PREDNISOLONE
     Route: 048
     Dates: start: 20201128
  59. PREDNISOLONE [Suspect]
     Active Substance: PREDNISOLONE
     Route: 048
     Dates: start: 20201215
  60. PREDNISOLONE [Suspect]
     Active Substance: PREDNISOLONE
     Route: 048
     Dates: start: 20210109
  61. PREDNISOLONE [Suspect]
     Active Substance: PREDNISOLONE
     Route: 048
     Dates: start: 20210218, end: 20210218
  62. PREDNISOLONE [Suspect]
     Active Substance: PREDNISOLONE
     Route: 065
     Dates: start: 20210220
  63. PREDNISOLONE [Suspect]
     Active Substance: PREDNISOLONE
     Route: 048
     Dates: start: 20210309
  64. PREDNISOLONE [Suspect]
     Active Substance: PREDNISOLONE
     Route: 048
     Dates: start: 20201118, end: 20201122
  65. PREDNISOLONE [Suspect]
     Active Substance: PREDNISOLONE
     Route: 048
     Dates: start: 20201118, end: 20201122
  66. PREDNISOLONE [Suspect]
     Active Substance: PREDNISOLONE
     Route: 048
     Dates: start: 20201124
  67. PREDNISOLONE [Suspect]
     Active Substance: PREDNISOLONE
     Route: 048
     Dates: start: 20201118, end: 20201122
  68. PREDNISOLONE [Suspect]
     Active Substance: PREDNISOLONE
     Route: 065
     Dates: start: 20201124
  69. PREDNISOLONE [Suspect]
     Active Substance: PREDNISOLONE
     Route: 048
     Dates: start: 20201118, end: 20201122
  70. PREDNISOLONE [Suspect]
     Active Substance: PREDNISOLONE
     Route: 048
     Dates: start: 20201118, end: 20201122
  71. PREDNISOLONE [Suspect]
     Active Substance: PREDNISOLONE
     Route: 065
     Dates: start: 20201124
  72. PREDNISOLONE [Suspect]
     Active Substance: PREDNISOLONE
     Route: 065
     Dates: start: 20201124
  73. PREDNISOLONE [Suspect]
     Active Substance: PREDNISOLONE
     Route: 065
     Dates: start: 20201124
  74. PREDNISOLONE [Suspect]
     Active Substance: PREDNISOLONE
     Route: 065
  75. PREDNISOLONE [Suspect]
     Active Substance: PREDNISOLONE
     Route: 065
  76. PREDNISOLONE [Suspect]
     Active Substance: PREDNISOLONE
     Route: 048
     Dates: start: 20201118, end: 20201122
  77. PREDNISOLONE [Suspect]
     Active Substance: PREDNISOLONE
     Route: 065
  78. PREDNISOLONE [Suspect]
     Active Substance: PREDNISOLONE
     Route: 065
     Dates: start: 20201124
  79. PREDNISOLONE [Suspect]
     Active Substance: PREDNISOLONE
     Route: 065
     Dates: start: 20201124
  80. PREDNISOLONE [Suspect]
     Active Substance: PREDNISOLONE
     Route: 048
     Dates: start: 20201118, end: 20201122
  81. PREDNISOLONE [Suspect]
     Active Substance: PREDNISOLONE
     Route: 065
  82. PREDNISOLONE [Suspect]
     Active Substance: PREDNISOLONE
     Route: 065
  83. PREDNISOLONE [Suspect]
     Active Substance: PREDNISOLONE
     Route: 065
  84. PREDNISOLONE [Suspect]
     Active Substance: PREDNISOLONE
     Route: 065
  85. PREDNISOLONE [Suspect]
     Active Substance: PREDNISOLONE
     Route: 065
  86. PREDNISOLONE [Suspect]
     Active Substance: PREDNISOLONE
     Route: 065
  87. PREDNISOLONE [Suspect]
     Active Substance: PREDNISOLONE
     Route: 065
     Dates: end: 20201122
  88. RITUXIMAB [Suspect]
     Active Substance: RITUXIMAB
     Indication: Diffuse large B-cell lymphoma
     Route: 065
     Dates: start: 20201124
  89. RITUXIMAB [Suspect]
     Active Substance: RITUXIMAB
     Indication: Product used for unknown indication
     Route: 065
  90. RITUXIMAB [Suspect]
     Active Substance: RITUXIMAB
     Route: 042
     Dates: start: 20201126
  91. RITUXIMAB [Suspect]
     Active Substance: RITUXIMAB
     Dosage: 3 ML, TIW, TIME INTERVAL: 0.33 WK
     Route: 065
     Dates: start: 20201221, end: 20201221
  92. RITUXIMAB [Suspect]
     Active Substance: RITUXIMAB
     Route: 065
     Dates: start: 20201221, end: 20201221
  93. RITUXIMAB [Suspect]
     Active Substance: RITUXIMAB
     Route: 065
     Dates: start: 20201221, end: 20201221
  94. RITUXIMAB [Suspect]
     Active Substance: RITUXIMAB
     Route: 042
     Dates: start: 20201221, end: 20201221
  95. RITUXIMAB [Suspect]
     Active Substance: RITUXIMAB
     Route: 065
     Dates: start: 20210216, end: 20210216
  96. RITUXIMAB [Suspect]
     Active Substance: RITUXIMAB
     Route: 065
  97. RITUXIMAB [Suspect]
     Active Substance: RITUXIMAB
     Route: 065
  98. RITUXIMAB [Suspect]
     Active Substance: RITUXIMAB
     Route: 065
  99. RITUXIMAB [Suspect]
     Active Substance: RITUXIMAB
     Route: 065
  100. RITUXIMAB [Suspect]
     Active Substance: RITUXIMAB
     Route: 065
  101. RITUXIMAB [Suspect]
     Active Substance: RITUXIMAB
     Route: 065
  102. RITUXIMAB [Suspect]
     Active Substance: RITUXIMAB
     Route: 065
  103. RITUXIMAB [Suspect]
     Active Substance: RITUXIMAB
     Route: 065
  104. RITUXIMAB [Suspect]
     Active Substance: RITUXIMAB
     Route: 065
     Dates: start: 20210216, end: 20210216
  105. RITUXIMAB [Suspect]
     Active Substance: RITUXIMAB
     Route: 065
     Dates: start: 20201124
  106. RITUXIMAB [Suspect]
     Active Substance: RITUXIMAB
     Route: 065
     Dates: start: 20210216
  107. RITUXIMAB [Suspect]
     Active Substance: RITUXIMAB
     Route: 065
     Dates: start: 20210216, end: 20210216
  108. RITUXIMAB [Suspect]
     Active Substance: RITUXIMAB
     Route: 065
     Dates: start: 20201124
  109. RITUXIMAB [Suspect]
     Active Substance: RITUXIMAB
     Route: 065
     Dates: start: 20210216, end: 20210216
  110. RITUXIMAB [Suspect]
     Active Substance: RITUXIMAB
     Route: 065
     Dates: start: 20210105, end: 20210216
  111. RITUXIMAB [Suspect]
     Active Substance: RITUXIMAB
     Dosage: 600 MG, TIW
     Route: 042
     Dates: start: 20210105, end: 20210216
  112. GLOFITAMAB [Suspect]
     Active Substance: GLOFITAMAB
     Indication: Diffuse large B-cell lymphoma
     Route: 065
  113. GLOFITAMAB [Suspect]
     Active Substance: GLOFITAMAB
     Route: 065
  114. GLOFITAMAB [Suspect]
     Active Substance: GLOFITAMAB
     Route: 065
  115. GLOFITAMAB [Suspect]
     Active Substance: GLOFITAMAB
     Route: 065
  116. GLOFITAMAB [Suspect]
     Active Substance: GLOFITAMAB
     Route: 065
     Dates: start: 20201222
  117. GLOFITAMAB [Suspect]
     Active Substance: GLOFITAMAB
     Route: 065
  118. GLOFITAMAB [Suspect]
     Active Substance: GLOFITAMAB
     Route: 065
  119. GLOFITAMAB [Suspect]
     Active Substance: GLOFITAMAB
     Route: 065
  120. GLOFITAMAB [Suspect]
     Active Substance: GLOFITAMAB
     Route: 065
  121. GLOFITAMAB [Suspect]
     Active Substance: GLOFITAMAB
     Route: 065
  122. GLOFITAMAB [Suspect]
     Active Substance: GLOFITAMAB
     Route: 065
  123. GLOFITAMAB [Suspect]
     Active Substance: GLOFITAMAB
     Route: 065
  124. GLOFITAMAB [Suspect]
     Active Substance: GLOFITAMAB
     Route: 065
  125. GLOFITAMAB [Suspect]
     Active Substance: GLOFITAMAB
     Route: 065
  126. GLOFITAMAB [Suspect]
     Active Substance: GLOFITAMAB
     Route: 065
  127. GLOFITAMAB [Suspect]
     Active Substance: GLOFITAMAB
     Route: 065
  128. GLOFITAMAB [Suspect]
     Active Substance: GLOFITAMAB
     Route: 065
  129. GLOFITAMAB [Suspect]
     Active Substance: GLOFITAMAB
     Route: 065
  130. GLOFITAMAB [Suspect]
     Active Substance: GLOFITAMAB
     Route: 065
  131. GLOFITAMAB [Suspect]
     Active Substance: GLOFITAMAB
     Route: 065
  132. GLOFITAMAB [Suspect]
     Active Substance: GLOFITAMAB
     Route: 065
  133. GLOFITAMAB [Suspect]
     Active Substance: GLOFITAMAB
     Route: 065
  134. GLOFITAMAB [Suspect]
     Active Substance: GLOFITAMAB
     Route: 065
     Dates: start: 20201222
  135. GLOFITAMAB [Suspect]
     Active Substance: GLOFITAMAB
     Route: 065
  136. GLOFITAMAB [Suspect]
     Active Substance: GLOFITAMAB
     Route: 065
     Dates: start: 20201222
  137. GLOFITAMAB [Suspect]
     Active Substance: GLOFITAMAB
     Route: 065
  138. GLOFITAMAB [Suspect]
     Active Substance: GLOFITAMAB
     Route: 065
  139. GLOFITAMAB [Suspect]
     Active Substance: GLOFITAMAB
     Route: 065
     Dates: start: 20201222
  140. GLOFITAMAB [Suspect]
     Active Substance: GLOFITAMAB
     Route: 065
     Dates: start: 20201222
  141. GLOFITAMAB [Suspect]
     Active Substance: GLOFITAMAB
     Route: 065
  142. GLOFITAMAB [Suspect]
     Active Substance: GLOFITAMAB
     Route: 042
     Dates: start: 20201222
  143. GLOFITAMAB [Suspect]
     Active Substance: GLOFITAMAB
     Route: 065
     Dates: start: 20201222
  144. GLOFITAMAB [Suspect]
     Active Substance: GLOFITAMAB
     Route: 065
  145. GLOFITAMAB [Suspect]
     Active Substance: GLOFITAMAB
     Route: 065
  146. GLOFITAMAB [Suspect]
     Active Substance: GLOFITAMAB
     Route: 065
  147. GLOFITAMAB [Suspect]
     Active Substance: GLOFITAMAB
     Route: 065
  148. GLOFITAMAB [Suspect]
     Active Substance: GLOFITAMAB
     Route: 065
     Dates: start: 20201222
  149. GLOFITAMAB [Suspect]
     Active Substance: GLOFITAMAB
     Route: 065
  150. GLOFITAMAB [Suspect]
     Active Substance: GLOFITAMAB
     Route: 065
  151. GLOFITAMAB [Suspect]
     Active Substance: GLOFITAMAB
     Route: 065
     Dates: start: 20201222
  152. GLOFITAMAB [Suspect]
     Active Substance: GLOFITAMAB
     Route: 065
  153. VALGANCICLOVIR [Suspect]
     Active Substance: VALGANCICLOVIR
     Indication: Cytomegalovirus viraemia
     Route: 065
     Dates: start: 20210426, end: 20210513
  154. VALGANCICLOVIR [Suspect]
     Active Substance: VALGANCICLOVIR
     Indication: Product used for unknown indication
     Route: 065
     Dates: start: 20210426, end: 20210513
  155. VALGANCICLOVIR [Suspect]
     Active Substance: VALGANCICLOVIR
     Route: 065
     Dates: start: 20210426, end: 20210513
  156. VALGANCICLOVIR [Suspect]
     Active Substance: VALGANCICLOVIR
     Route: 065
     Dates: start: 20210426, end: 20210513
  157. VALGANCICLOVIR [Suspect]
     Active Substance: VALGANCICLOVIR
     Route: 065
     Dates: start: 20210426, end: 20210513
  158. VALGANCICLOVIR [Suspect]
     Active Substance: VALGANCICLOVIR
     Route: 065
     Dates: start: 20210426, end: 20210513
  159. VALGANCICLOVIR [Suspect]
     Active Substance: VALGANCICLOVIR
     Route: 065
     Dates: end: 20210513
  160. VALGANCICLOVIR [Suspect]
     Active Substance: VALGANCICLOVIR
     Route: 065
     Dates: end: 20210513
  161. VALGANCICLOVIR [Suspect]
     Active Substance: VALGANCICLOVIR
     Route: 065
     Dates: end: 20210513
  162. VALGANCICLOVIR [Suspect]
     Active Substance: VALGANCICLOVIR
     Route: 065
     Dates: start: 20210518
  163. VALGANCICLOVIR [Suspect]
     Active Substance: VALGANCICLOVIR
     Route: 065
     Dates: start: 20210518
  164. VALGANCICLOVIR [Suspect]
     Active Substance: VALGANCICLOVIR
     Route: 065
     Dates: start: 20210426, end: 20210513
  165. VALGANCICLOVIR [Suspect]
     Active Substance: VALGANCICLOVIR
     Route: 065
     Dates: start: 20210426, end: 20210513
  166. VALGANCICLOVIR [Suspect]
     Active Substance: VALGANCICLOVIR
     Route: 065
     Dates: start: 20210426, end: 20210513
  167. VALGANCICLOVIR [Suspect]
     Active Substance: VALGANCICLOVIR
     Route: 065
     Dates: end: 20210513
  168. VALGANCICLOVIR [Suspect]
     Active Substance: VALGANCICLOVIR
     Route: 065
     Dates: end: 20210513
  169. VINCRISTINE [Suspect]
     Active Substance: VINCRISTINE
     Indication: Diffuse large B-cell lymphoma
     Route: 065
  170. VINCRISTINE [Suspect]
     Active Substance: VINCRISTINE
     Route: 065
     Dates: start: 20201121
  171. VINCRISTINE [Suspect]
     Active Substance: VINCRISTINE
     Route: 042
     Dates: start: 20201124
  172. VINCRISTINE [Suspect]
     Active Substance: VINCRISTINE
     Route: 042
     Dates: start: 20201124
  173. VINCRISTINE [Suspect]
     Active Substance: VINCRISTINE
     Route: 042
     Dates: start: 20201124
  174. VINCRISTINE [Suspect]
     Active Substance: VINCRISTINE
     Route: 042
     Dates: start: 20201124
  175. VINCRISTINE [Suspect]
     Active Substance: VINCRISTINE
     Route: 042
     Dates: start: 20201124
  176. VINCRISTINE [Suspect]
     Active Substance: VINCRISTINE
     Route: 042
     Dates: start: 20201124
  177. VINCRISTINE [Suspect]
     Active Substance: VINCRISTINE
     Route: 042
     Dates: start: 20201124
  178. VINCRISTINE [Suspect]
     Active Substance: VINCRISTINE
     Route: 042
     Dates: start: 20201124
  179. VINCRISTINE [Suspect]
     Active Substance: VINCRISTINE
     Route: 042
     Dates: start: 20201121
  180. VINCRISTINE [Suspect]
     Active Substance: VINCRISTINE
     Route: 042
     Dates: start: 20201124
  181. VINCRISTINE [Suspect]
     Active Substance: VINCRISTINE
     Route: 042
     Dates: start: 20201124
  182. VINCRISTINE [Suspect]
     Active Substance: VINCRISTINE
     Route: 042
     Dates: start: 20201124
  183. VINCRISTINE [Suspect]
     Active Substance: VINCRISTINE
     Route: 042
     Dates: start: 20201124
  184. VINCRISTINE [Suspect]
     Active Substance: VINCRISTINE
     Route: 042
     Dates: start: 20201124
  185. VINCRISTINE [Suspect]
     Active Substance: VINCRISTINE
     Route: 042
     Dates: start: 20201124
  186. VINCRISTINE [Suspect]
     Active Substance: VINCRISTINE
     Route: 042
     Dates: start: 20201124
  187. VINCRISTINE [Suspect]
     Active Substance: VINCRISTINE
     Route: 042
     Dates: start: 20201124
  188. VINCRISTINE [Suspect]
     Active Substance: VINCRISTINE
     Route: 065
  189. VINCRISTINE [Suspect]
     Active Substance: VINCRISTINE
     Route: 065
  190. VINCRISTINE [Suspect]
     Active Substance: VINCRISTINE
     Route: 042
  191. VINCRISTINE [Suspect]
     Active Substance: VINCRISTINE
     Route: 065
  192. VINCRISTINE [Suspect]
     Active Substance: VINCRISTINE
     Route: 042
     Dates: start: 20201215, end: 20201215
  193. VINCRISTINE [Suspect]
     Active Substance: VINCRISTINE
     Route: 042
     Dates: start: 20210105, end: 20210105
  194. VINCRISTINE [Suspect]
     Active Substance: VINCRISTINE
     Route: 042
     Dates: start: 20210126, end: 20210126
  195. VINCRISTINE [Suspect]
     Active Substance: VINCRISTINE
     Route: 042
     Dates: start: 20210216
  196. VINCRISTINE [Suspect]
     Active Substance: VINCRISTINE
     Route: 042
     Dates: start: 20210309, end: 20210309
  197. VINCRISTINE [Suspect]
     Active Substance: VINCRISTINE
     Route: 065
  198. VINCRISTINE [Suspect]
     Active Substance: VINCRISTINE
     Route: 065
  199. VINCRISTINE [Suspect]
     Active Substance: VINCRISTINE
     Route: 065
  200. VINCRISTINE [Suspect]
     Active Substance: VINCRISTINE
     Route: 065
  201. VINCRISTINE [Suspect]
     Active Substance: VINCRISTINE
     Route: 042
     Dates: start: 20201124
  202. VINCRISTINE [Suspect]
     Active Substance: VINCRISTINE
     Route: 042
     Dates: start: 20201124
  203. VINCRISTINE [Suspect]
     Active Substance: VINCRISTINE
     Route: 065
  204. VINCRISTINE [Suspect]
     Active Substance: VINCRISTINE
     Route: 042
     Dates: start: 20201124
  205. VINCRISTINE [Suspect]
     Active Substance: VINCRISTINE
     Route: 042
  206. VINCRISTINE [Suspect]
     Active Substance: VINCRISTINE
     Route: 042
  207. VINCRISTINE [Suspect]
     Active Substance: VINCRISTINE
     Route: 042
  208. VINCRISTINE [Suspect]
     Active Substance: VINCRISTINE
     Route: 042
  209. VINCRISTINE [Suspect]
     Active Substance: VINCRISTINE
     Route: 065
  210. VINCRISTINE [Suspect]
     Active Substance: VINCRISTINE
     Route: 065
  211. VINCRISTINE [Suspect]
     Active Substance: VINCRISTINE
     Route: 065
  212. VINCRISTINE [Suspect]
     Active Substance: VINCRISTINE
     Route: 065
     Dates: start: 20201124
  213. VINCRISTINE [Suspect]
     Active Substance: VINCRISTINE
     Route: 065
     Dates: start: 20201124
  214. VINCRISTINE [Suspect]
     Active Substance: VINCRISTINE
     Route: 065
  215. VINCRISTINE [Suspect]
     Active Substance: VINCRISTINE
     Route: 065
  216. VINCRISTINE [Suspect]
     Active Substance: VINCRISTINE
     Route: 042
     Dates: start: 20201124
  217. VINCRISTINE [Suspect]
     Active Substance: VINCRISTINE
     Route: 042
     Dates: start: 20201124
  218. VINCRISTINE [Suspect]
     Active Substance: VINCRISTINE
     Route: 065
     Dates: start: 20201124
  219. ALLOPURINOL [Concomitant]
     Active Substance: ALLOPURINOL
     Indication: Prophylaxis
     Route: 065
     Dates: start: 20201118
  220. ALLOPURINOL [Concomitant]
     Active Substance: ALLOPURINOL
     Route: 065
     Dates: start: 20201118
  221. ALLOPURINOL [Concomitant]
     Active Substance: ALLOPURINOL
     Route: 065
     Dates: start: 20201118
  222. ALLOPURINOL [Concomitant]
     Active Substance: ALLOPURINOL
     Route: 065
     Dates: start: 20201118
  223. ALLOPURINOL [Concomitant]
     Active Substance: ALLOPURINOL
     Route: 065
     Dates: start: 20201118
  224. ALLOPURINOL [Concomitant]
     Active Substance: ALLOPURINOL
     Route: 065
     Dates: start: 20201118
  225. ALLOPURINOL [Concomitant]
     Active Substance: ALLOPURINOL
     Route: 065
     Dates: start: 20201118
  226. ALLOPURINOL [Concomitant]
     Active Substance: ALLOPURINOL
     Route: 065
     Dates: start: 20201118
  227. ALLOPURINOL [Concomitant]
     Active Substance: ALLOPURINOL
     Route: 065
     Dates: start: 20201118
  228. ALLOPURINOL [Concomitant]
     Active Substance: ALLOPURINOL
     Route: 065
     Dates: start: 20201118
  229. ALLOPURINOL [Concomitant]
     Active Substance: ALLOPURINOL
     Route: 065
     Dates: start: 20201118
  230. ALLOPURINOL [Concomitant]
     Active Substance: ALLOPURINOL
     Route: 065
     Dates: start: 20201118
  231. ALLOPURINOL [Concomitant]
     Active Substance: ALLOPURINOL
     Route: 065
     Dates: start: 20201118
  232. CODEINE [Concomitant]
     Active Substance: CODEINE
     Indication: Pain
     Route: 065
     Dates: start: 20201224, end: 20201224
  233. CODEINE [Concomitant]
     Active Substance: CODEINE
     Route: 065
     Dates: start: 20201123
  234. OMEPRAZOLE [Concomitant]
     Active Substance: OMEPRAZOLE
     Indication: Gastrointestinal disorder prophylaxis
     Route: 065
  235. OMEPRAZOLE [Concomitant]
     Active Substance: OMEPRAZOLE
     Indication: Product used for unknown indication
     Route: 065
     Dates: start: 20201118
  236. OMEPRAZOLE [Concomitant]
     Active Substance: OMEPRAZOLE
     Indication: Gastrointestinal disorder prophylaxis
  237. OMEPRAZOLE [Concomitant]
     Active Substance: OMEPRAZOLE
     Dates: start: 20201118
  238. OMEPRAZOLE [Concomitant]
     Active Substance: OMEPRAZOLE
     Dates: start: 20201118
  239. OMEPRAZOLE [Concomitant]
     Active Substance: OMEPRAZOLE
     Dates: start: 20201118
  240. OMEPRAZOLE [Concomitant]
     Active Substance: OMEPRAZOLE
  241. OMEPRAZOLE [Concomitant]
     Active Substance: OMEPRAZOLE
  242. OMEPRAZOLE [Concomitant]
     Active Substance: OMEPRAZOLE
     Dates: start: 20201118
  243. OMEPRAZOLE [Concomitant]
     Active Substance: OMEPRAZOLE
  244. OMEPRAZOLE [Concomitant]
     Active Substance: OMEPRAZOLE
  245. OMEPRAZOLE [Concomitant]
     Active Substance: OMEPRAZOLE
  246. OMEPRAZOLE [Concomitant]
     Active Substance: OMEPRAZOLE
  247. OMEPRAZOLE [Concomitant]
     Active Substance: OMEPRAZOLE
  248. OMEPRAZOLE [Concomitant]
     Active Substance: OMEPRAZOLE
  249. OMEPRAZOLE [Concomitant]
     Active Substance: OMEPRAZOLE
  250. OMEPRAZOLE [Concomitant]
     Active Substance: OMEPRAZOLE
  251. OMEPRAZOLE [Concomitant]
     Active Substance: OMEPRAZOLE
  252. OMEPRAZOLE [Concomitant]
     Active Substance: OMEPRAZOLE
  253. OMEPRAZOLE [Concomitant]
     Active Substance: OMEPRAZOLE
  254. OMEPRAZOLE [Concomitant]
     Active Substance: OMEPRAZOLE
  255. OMEPRAZOLE [Concomitant]
     Active Substance: OMEPRAZOLE
  256. OMEPRAZOLE [Concomitant]
     Active Substance: OMEPRAZOLE
  257. OMEPRAZOLE [Concomitant]
     Active Substance: OMEPRAZOLE
     Dates: start: 20201118
  258. ACETAMINOPHEN [Concomitant]
     Active Substance: ACETAMINOPHEN
     Indication: Prophylaxis
     Route: 065
     Dates: start: 20201124, end: 20201124
  259. ACETAMINOPHEN [Concomitant]
     Active Substance: ACETAMINOPHEN
     Route: 065
     Dates: start: 20210209, end: 20210209
  260. ACETAMINOPHEN [Concomitant]
     Active Substance: ACETAMINOPHEN
     Route: 065
     Dates: start: 20210323, end: 20210323
  261. ACETAMINOPHEN [Concomitant]
     Active Substance: ACETAMINOPHEN
     Route: 065
     Dates: start: 20210126, end: 20210126
  262. ACETAMINOPHEN [Concomitant]
     Active Substance: ACETAMINOPHEN
     Route: 065
     Dates: start: 20210323, end: 20210323
  263. ACETAMINOPHEN [Concomitant]
     Active Substance: ACETAMINOPHEN
     Route: 065
     Dates: start: 20201123
  264. ACETAMINOPHEN [Concomitant]
     Active Substance: ACETAMINOPHEN
     Route: 065
     Dates: start: 20201123
  265. ACETAMINOPHEN [Concomitant]
     Active Substance: ACETAMINOPHEN
     Route: 048
     Dates: start: 20201124, end: 20201124
  266. ACETAMINOPHEN [Concomitant]
     Active Substance: ACETAMINOPHEN
     Route: 048
     Dates: start: 20201215, end: 20201215
  267. ACETAMINOPHEN [Concomitant]
     Active Substance: ACETAMINOPHEN
     Route: 048
     Dates: start: 20210119, end: 20210119
  268. ACETAMINOPHEN [Concomitant]
     Active Substance: ACETAMINOPHEN
     Route: 048
     Dates: start: 20210323, end: 20210323
  269. ACETAMINOPHEN [Concomitant]
     Active Substance: ACETAMINOPHEN
     Route: 065
     Dates: start: 20210216, end: 20210216
  270. ACETAMINOPHEN [Concomitant]
     Active Substance: ACETAMINOPHEN
     Route: 065
     Dates: start: 20210309, end: 20210309
  271. ACETAMINOPHEN [Concomitant]
     Active Substance: ACETAMINOPHEN
     Route: 048
     Dates: start: 20210123, end: 20210123
  272. ACETAMINOPHEN [Concomitant]
     Active Substance: ACETAMINOPHEN
     Route: 048
     Dates: start: 20210323, end: 20210323
  273. ACETAMINOPHEN [Concomitant]
     Active Substance: ACETAMINOPHEN
     Route: 048
     Dates: start: 20210119, end: 20210119
  274. ACETAMINOPHEN [Concomitant]
     Active Substance: ACETAMINOPHEN
     Route: 048
     Dates: start: 20210209, end: 20210209
  275. ACETAMINOPHEN [Concomitant]
     Active Substance: ACETAMINOPHEN
     Route: 048
     Dates: start: 20210126, end: 20210126
  276. ACETAMINOPHEN [Concomitant]
     Active Substance: ACETAMINOPHEN
     Route: 048
     Dates: start: 20210309, end: 20210309
  277. ACETAMINOPHEN [Concomitant]
     Active Substance: ACETAMINOPHEN
     Route: 048
     Dates: start: 20201215, end: 20201215
  278. ACETAMINOPHEN [Concomitant]
     Active Substance: ACETAMINOPHEN
     Route: 048
     Dates: start: 20210216, end: 20210216
  279. ACETAMINOPHEN [Concomitant]
     Active Substance: ACETAMINOPHEN
     Route: 048
     Dates: start: 20210302, end: 20210302
  280. ACETAMINOPHEN [Concomitant]
     Active Substance: ACETAMINOPHEN
     Route: 048
     Dates: start: 20201124, end: 20201124
  281. SENNA [Concomitant]
     Active Substance: SENNOSIDES
     Indication: Constipation
     Route: 065
     Dates: start: 20201124
  282. SENNA [Concomitant]
     Active Substance: SENNOSIDES
     Route: 065
     Dates: start: 20201124
  283. SENNA [Concomitant]
     Active Substance: SENNOSIDES
     Route: 065
     Dates: start: 20201124
  284. SENNA [Concomitant]
     Active Substance: SENNOSIDES
     Route: 065
     Dates: start: 20201124
  285. SENNA [Concomitant]
     Active Substance: SENNOSIDES
     Route: 065
     Dates: start: 20201124
  286. SENNA [Concomitant]
     Active Substance: SENNOSIDES
     Route: 065
     Dates: start: 20201124
  287. SENNA [Concomitant]
     Active Substance: SENNOSIDES
     Route: 065
     Dates: start: 20201124
  288. SENNA [Concomitant]
     Active Substance: SENNOSIDES
     Route: 065
     Dates: start: 20201124
  289. SENNA [Concomitant]
     Active Substance: SENNOSIDES
     Route: 065
     Dates: start: 20201124
  290. SENNA [Concomitant]
     Active Substance: SENNOSIDES
     Route: 065
     Dates: start: 20201124
  291. SENNA [Concomitant]
     Active Substance: SENNOSIDES
     Route: 065
     Dates: start: 20201124
  292. SENNA [Concomitant]
     Active Substance: SENNOSIDES
     Route: 065
     Dates: start: 20201124
  293. SENNA [Concomitant]
     Active Substance: SENNOSIDES
     Route: 065
     Dates: start: 20201124
  294. CHLORPHENIRAMINE MALEATE [Concomitant]
     Active Substance: CHLORPHENIRAMINE MALEATE
     Indication: Rash maculo-papular
     Route: 065
     Dates: start: 20210323, end: 20210323
  295. CHLORPHENIRAMINE MALEATE [Concomitant]
     Active Substance: CHLORPHENIRAMINE MALEATE
     Indication: Prophylaxis
     Route: 065
     Dates: start: 20201215, end: 20201215
  296. CHLORPHENIRAMINE MALEATE [Concomitant]
     Active Substance: CHLORPHENIRAMINE MALEATE
     Route: 065
     Dates: start: 20210216, end: 20210216
  297. CHLORPHENIRAMINE MALEATE [Concomitant]
     Active Substance: CHLORPHENIRAMINE MALEATE
     Route: 065
     Dates: start: 20210209, end: 20210209
  298. CHLORPHENIRAMINE MALEATE [Concomitant]
     Active Substance: CHLORPHENIRAMINE MALEATE
     Route: 065
     Dates: start: 20210309, end: 20210309
  299. CHLORPHENIRAMINE MALEATE [Concomitant]
     Active Substance: CHLORPHENIRAMINE MALEATE
     Route: 065
     Dates: start: 20201124, end: 20201124
  300. CHLORPHENIRAMINE MALEATE [Concomitant]
     Active Substance: CHLORPHENIRAMINE MALEATE
     Route: 065
     Dates: start: 20210302, end: 20210302
  301. CHLORPHENIRAMINE MALEATE [Concomitant]
     Active Substance: CHLORPHENIRAMINE MALEATE
     Route: 065
     Dates: start: 20201217
  302. CHLORPHENIRAMINE MALEATE [Concomitant]
     Active Substance: CHLORPHENIRAMINE MALEATE
     Route: 065
     Dates: start: 20210119, end: 20210119
  303. CHLORPHENIRAMINE MALEATE [Concomitant]
     Active Substance: CHLORPHENIRAMINE MALEATE
     Route: 065
     Dates: start: 20210126, end: 20210126
  304. CHLORPHENIRAMINE MALEATE [Concomitant]
     Active Substance: CHLORPHENIRAMINE MALEATE
     Route: 065
     Dates: start: 20201215, end: 20201215
  305. CHLORPHENIRAMINE MALEATE [Concomitant]
     Active Substance: CHLORPHENIRAMINE MALEATE
     Route: 065
     Dates: start: 20201124, end: 20201124
  306. DEXAMETHASONE [Concomitant]
     Active Substance: DEXAMETHASONE
     Indication: Product used for unknown indication
     Route: 065
     Dates: start: 20210119, end: 20210119
  307. DEXAMETHASONE [Concomitant]
     Active Substance: DEXAMETHASONE
     Route: 065
     Dates: start: 20210302, end: 20210302
  308. DEXAMETHASONE [Concomitant]
     Active Substance: DEXAMETHASONE
     Route: 065
     Dates: start: 20210323, end: 20210323
  309. DEXAMETHASONE [Concomitant]
     Active Substance: DEXAMETHASONE
     Route: 065
     Dates: start: 20210302, end: 20210302
  310. DEXAMETHASONE [Concomitant]
     Active Substance: DEXAMETHASONE
     Route: 065
     Dates: start: 20210209, end: 20210209
  311. DEXAMETHASONE [Concomitant]
     Active Substance: DEXAMETHASONE
     Route: 042
     Dates: start: 20210323, end: 20210323
  312. DEXAMETHASONE [Concomitant]
     Active Substance: DEXAMETHASONE
     Route: 042
     Dates: start: 20210209, end: 20210209
  313. DEXAMETHASONE [Concomitant]
     Active Substance: DEXAMETHASONE
     Route: 042
     Dates: start: 20210302, end: 20210302
  314. DEXAMETHASONE [Concomitant]
     Active Substance: DEXAMETHASONE
     Route: 042
     Dates: start: 20210119, end: 20210119
  315. PREDNISOLONE [Concomitant]
     Active Substance: PREDNISOLONE
     Indication: Product used for unknown indication
     Route: 065
     Dates: start: 20201118, end: 20201122
  316. PREDNISOLONE [Concomitant]
     Active Substance: PREDNISOLONE
     Indication: Diffuse large B-cell lymphoma
     Route: 065
     Dates: start: 20201124
  317. PREDNISOLONE [Concomitant]
     Active Substance: PREDNISOLONE
     Route: 065
  318. PREDNISOLONE [Concomitant]
     Active Substance: PREDNISOLONE
     Route: 065
  319. SENOKOT [Concomitant]
     Active Substance: SENNOSIDES
     Indication: Constipation
     Route: 065
  320. SENOKOT [Concomitant]
     Active Substance: SENNOSIDES
     Route: 065
     Dates: start: 20201124
  321. FILGRASTIM [Concomitant]
     Active Substance: FILGRASTIM
     Indication: Prophylaxis
     Route: 065
     Dates: start: 20201220
  322. FILGRASTIM [Concomitant]
     Active Substance: FILGRASTIM
     Route: 065
     Dates: start: 20201129, end: 20201206
  323. COVID-19 vaccine [Concomitant]
     Indication: Product used for unknown indication
     Route: 065
  324. SARS-CoV-2 vaccine [Concomitant]
     Indication: Product used for unknown indication
     Route: 065

REACTIONS (10)
  - Death [Fatal]
  - Product use in unapproved indication [Unknown]
  - Product use issue [Unknown]
  - Overdose [Unknown]
  - Off label use [Unknown]
  - Underdose [Unknown]
  - Neutropenia [Recovered/Resolved]
  - Neutropenia [Recovered/Resolved]
  - Neutropenia [Recovered/Resolved]
  - Neutropenia [Recovered/Resolved]

NARRATIVE: CASE EVENT DATE: 20201124
